FAERS Safety Report 7256983-8 (Version None)
Quarter: 2011Q1

REPORT INFORMATION
  Report Type: 
  Country: None (occurrence: None)
  Receive Date: 20110129
  Receipt Date: 20100810
  Transmission Date: 20110831
  Serious: No
  Sender: FDA-Public Use
  Company Number: US-ABBOTT-10P-163-0658442-00

PATIENT
  Sex: Female
  Weight: 97.61 kg

DRUGS (14)
  1. METHOTREXATE [Concomitant]
     Indication: CROHN'S DISEASE
  2. HUMIRA [Suspect]
     Indication: CROHN'S DISEASE
  3. KLONOPIN [Concomitant]
     Indication: ANXIETY
  4. VITAMIN D [Concomitant]
     Indication: VITAMIN SUPPLEMENTATION
  5. LISINOPRIL [Concomitant]
     Indication: HYPERTENSION
  6. MULTIPLE VITAMINS [Concomitant]
     Indication: VITAMIN SUPPLEMENTATION
  7. ATACAND HCT [Concomitant]
     Indication: HYPERTENSION
  8. WELLBUTRIN [Concomitant]
     Indication: DEPRESSION
  9. FOLIC ACID [Concomitant]
     Indication: VITAMIN SUPPLEMENTATION
  10. GLUCOPHAGE [Concomitant]
     Indication: DIABETES MELLITUS
  11. VITAMIN B-12 [Concomitant]
     Indication: VITAMIN SUPPLEMENTATION
  12. FLAX SEED [Concomitant]
     Indication: SUPPLEMENTATION THERAPY
  13. GLUCOSAMINE CHONDROITIN [Concomitant]
     Indication: SUPPLEMENTATION THERAPY
  14. CALCIUM [Concomitant]
     Indication: MINERAL SUPPLEMENTATION

REACTIONS (6)
  - ANAEMIA [None]
  - RED BLOOD CELL SEDIMENTATION RATE INCREASED [None]
  - HAEMATOCHEZIA [None]
  - INCORRECT DOSE ADMINISTERED [None]
  - RENAL IMPAIRMENT [None]
  - DEVICE MALFUNCTION [None]
